FAERS Safety Report 9434447 (Version 1)
Quarter: 2013Q3

REPORT INFORMATION
  Report Type: Spontaneous
  Country: US (occurrence: US)
  Receive Date: 20130725
  Receipt Date: 20130725
  Transmission Date: 20140515
  Serious: Yes (Other)
  Sender: FDA-Public Use
  Company Number: JPI-P-033345

PATIENT
  Age: 35 Year
  Sex: Female

DRUGS (3)
  1. XYREM [Suspect]
     Indication: CATAPLEXY
     Route: 048
     Dates: start: 20111117
  2. CYCLOBENZAPRINE [Concomitant]
  3. CLONAZEPAM [Concomitant]

REACTIONS (1)
  - Ovarian cyst ruptured [None]
